FAERS Safety Report 13274245 (Version 1)
Quarter: 2017Q1

REPORT INFORMATION
  Report Type: Spontaneous
  Country: GB (occurrence: GB)
  Receive Date: 20170227
  Receipt Date: 20170227
  Transmission Date: 20170428
  Serious: Yes (Other)
  Sender: FDA-Public Use
  Company Number: GB-PFIZER INC-2017078502

PATIENT
  Age: 20 Year
  Sex: Female
  Weight: 58 kg

DRUGS (1)
  1. DEPO-PROVERA [Suspect]
     Active Substance: MEDROXYPROGESTERONE ACETATE
     Indication: ENDOMETRIOSIS
     Dosage: UNK
     Route: 051
     Dates: start: 2009, end: 2015

REACTIONS (3)
  - Stress fracture [Unknown]
  - Product use issue [Unknown]
  - Osteoporosis [Recovered/Resolved]

NARRATIVE: CASE EVENT DATE: 2009
